FAERS Safety Report 15793026 (Version 1)
Quarter: 2019Q1

REPORT INFORMATION
  Report Type: Spontaneous
  Country: GB (occurrence: GB)
  Receive Date: 20190107
  Receipt Date: 20190107
  Transmission Date: 20190417
  Serious: Yes (Other)
  Sender: FDA-Public Use
  Company Number: GB-TEVA-2019-GB-995659

PATIENT
  Age: 59 Year
  Sex: Male
  Weight: 94.5 kg

DRUGS (10)
  1. SAXAGLIPTIN [Concomitant]
     Active Substance: SAXAGLIPTIN
  2. CO-PROXAMOL [Concomitant]
     Active Substance: ACETAMINOPHEN\PROPOXYPHENE HYDROCHLORIDE
  3. SYMBICORT [Concomitant]
     Active Substance: BUDESONIDE\FORMOTEROL FUMARATE DIHYDRATE
  4. VENTOLIN [Concomitant]
     Active Substance: ALBUTEROL SULFATE
  5. ATORVASTATIN [Concomitant]
     Active Substance: ATORVASTATIN
  6. CLOZAPINE. [Suspect]
     Active Substance: CLOZAPINE
     Indication: SCHIZOPHRENIA
     Dosage: 450 MILLIGRAM DAILY;
     Route: 048
  7. OMEPRAZOLE. [Concomitant]
     Active Substance: OMEPRAZOLE
  8. PIRENZEPINE [Suspect]
     Active Substance: PIRENZEPINE
     Dosage: 100 MILLIGRAM DAILY;
     Route: 048
  9. METFORMIN [Concomitant]
     Active Substance: METFORMIN HYDROCHLORIDE
  10. VENLAFAXINE [Suspect]
     Active Substance: VENLAFAXINE HYDROCHLORIDE
     Dosage: 75 MILLIGRAM DAILY;
     Route: 048

REACTIONS (1)
  - Hypogammaglobulinaemia [Not Recovered/Not Resolved]
